FAERS Safety Report 22673861 (Version 2)
Quarter: 2024Q1

REPORT INFORMATION
  Report Type: Spontaneous
  Country: NL (occurrence: NL)
  Receive Date: 20230705
  Receipt Date: 20240202
  Transmission Date: 20240410
  Serious: Yes (Life-Threatening)
  Sender: FDA-Public Use
  Company Number: NL-LRB-00874075

PATIENT
  Sex: Female
  Weight: 94 kg

DRUGS (1)
  1. PREGABALIN [Suspect]
     Active Substance: PREGABALIN
     Indication: Neuralgia
     Dosage: 150 MILLIGRAM, BID, 1 PIECE 2X A DAY
     Route: 065
     Dates: start: 20230329, end: 20230403

REACTIONS (2)
  - Delusion [Recovering/Resolving]
  - Amnesia [Recovering/Resolving]
